FAERS Safety Report 8904754 (Version 1)
Quarter: 2012Q4

REPORT INFORMATION
  Report Type: Report from Study
  Country: JP (occurrence: JP)
  Receive Date: 20121113
  Receipt Date: 20121113
  Transmission Date: 20130627
  Serious: Yes (Other)
  Sender: FDA-Public Use
  Company Number: JP-VERTEX PHARMACEUTICAL INC.-2012-021557

PATIENT
  Age: 65 Year
  Sex: Male

DRUGS (8)
  1. VX-950 [Suspect]
     Indication: CHRONIC HEPATITIS C
     Dosage: 2250 mg, qd
     Route: 048
     Dates: start: 20120831, end: 20120915
  2. PEGINTRON                          /01543001/ [Suspect]
     Indication: CHRONIC HEPATITIS C
     Dosage: 1.5 ?g/kg, qw
     Route: 058
     Dates: start: 20120831, end: 20120920
  3. REBETOL [Suspect]
     Indication: CHRONIC HEPATITIS C
     Dosage: 600 mg, qd
     Route: 048
     Dates: start: 20120831, end: 20120915
  4. REBETOL [Suspect]
     Dosage: UNK mg, qd
     Route: 048
     Dates: start: 20120913, end: 20120914
  5. NAIXAN                             /00256201/ [Concomitant]
     Dosage: 100 mg, qd prn
     Route: 048
     Dates: start: 20120831, end: 20120915
  6. SELBEX [Concomitant]
     Dosage: 100 mg, qd
     Route: 048
     Dates: start: 20120903, end: 20121011
  7. PARIET [Concomitant]
     Dosage: 10 mg, qd
     Route: 048
     Dates: start: 20120914
  8. MUCOSTA [Concomitant]
     Dosage: 300 mg, qd
     Route: 048
     Dates: start: 20120922

REACTIONS (7)
  - Haemoglobin decreased [Recovered/Resolved]
  - Gastrointestinal haemorrhage [Unknown]
  - Shock haemorrhagic [Unknown]
  - Pyrexia [None]
  - Rash [None]
  - Pruritus [None]
  - Small intestinal ulcer haemorrhage [None]
